FAERS Safety Report 24895191 (Version 1)
Quarter: 2025Q1

REPORT INFORMATION
  Report Type: Report from Study
  Country: CA (occurrence: CA)
  Receive Date: 20250128
  Receipt Date: 20250128
  Transmission Date: 20250408
  Serious: Yes (Hospitalization, Other)
  Sender: TEVA
  Company Number: CA-TEVA-VS-3291465

PATIENT
  Age: 63 Year
  Sex: Female

DRUGS (23)
  1. ALBUTEROL SULFATE\IPRATROPIUM BROMIDE [Suspect]
     Active Substance: ALBUTEROL SULFATE\IPRATROPIUM BROMIDE
     Indication: Seasonal allergy
     Route: 065
  2. ALBUTEROL SULFATE\IPRATROPIUM BROMIDE [Suspect]
     Active Substance: ALBUTEROL SULFATE\IPRATROPIUM BROMIDE
     Indication: Seasonal allergy
     Route: 065
  3. ALBUTEROL SULFATE\IPRATROPIUM BROMIDE [Suspect]
     Active Substance: ALBUTEROL SULFATE\IPRATROPIUM BROMIDE
     Indication: Seasonal allergy
     Route: 065
  4. ALBUTEROL SULFATE\IPRATROPIUM BROMIDE [Suspect]
     Active Substance: ALBUTEROL SULFATE\IPRATROPIUM BROMIDE
     Indication: Seasonal allergy
     Route: 065
  5. OMALIZUMAB [Suspect]
     Active Substance: OMALIZUMAB
     Indication: Asthma
     Route: 065
  6. OMALIZUMAB [Suspect]
     Active Substance: OMALIZUMAB
     Indication: Asthma
     Route: 065
  7. OMALIZUMAB [Suspect]
     Active Substance: OMALIZUMAB
     Indication: Asthma
     Route: 065
  8. OMALIZUMAB [Suspect]
     Active Substance: OMALIZUMAB
     Indication: Asthma
     Route: 065
  9. OMALIZUMAB [Suspect]
     Active Substance: OMALIZUMAB
     Indication: Asthma
     Route: 065
  10. OMALIZUMAB [Suspect]
     Active Substance: OMALIZUMAB
     Indication: Asthma
     Route: 065
  11. OMALIZUMAB [Suspect]
     Active Substance: OMALIZUMAB
     Indication: Asthma
     Route: 065
  12. OMALIZUMAB [Suspect]
     Active Substance: OMALIZUMAB
     Indication: Asthma
     Route: 058
  13. OMALIZUMAB [Suspect]
     Active Substance: OMALIZUMAB
     Indication: Asthma
     Route: 065
  14. OMALIZUMAB [Suspect]
     Active Substance: OMALIZUMAB
     Indication: Asthma
     Route: 065
  15. OMALIZUMAB [Suspect]
     Active Substance: OMALIZUMAB
     Indication: Asthma
     Route: 058
  16. OMALIZUMAB [Suspect]
     Active Substance: OMALIZUMAB
     Indication: Asthma
     Route: 065
  17. OMALIZUMAB [Suspect]
     Active Substance: OMALIZUMAB
     Indication: Asthma
     Dosage: DOSE FORM: NOT SPECIFIED
     Route: 058
  18. OMALIZUMAB [Suspect]
     Active Substance: OMALIZUMAB
     Indication: Asthma
     Route: 065
  19. OMALIZUMAB [Suspect]
     Active Substance: OMALIZUMAB
     Indication: Asthma
     Route: 065
  20. OMALIZUMAB [Suspect]
     Active Substance: OMALIZUMAB
     Indication: Asthma
     Route: 065
  21. OMALIZUMAB [Suspect]
     Active Substance: OMALIZUMAB
     Indication: Asthma
     Route: 065
  22. METOPROLOL [Concomitant]
     Active Substance: METOPROLOL
     Indication: Product used for unknown indication
     Route: 065
  23. AMIODARONE [Concomitant]
     Active Substance: AMIODARONE
     Indication: Product used for unknown indication
     Route: 065

REACTIONS (39)
  - Dyspnoea exertional [Recovering/Resolving]
  - Asthma [Recovering/Resolving]
  - Back pain [Recovering/Resolving]
  - Cough [Recovering/Resolving]
  - Cardiomegaly [Recovering/Resolving]
  - Body temperature decreased [Recovering/Resolving]
  - Chest pain [Recovering/Resolving]
  - Blood pressure systolic increased [Recovering/Resolving]
  - Infection [Recovering/Resolving]
  - Sensitivity to weather change [Recovering/Resolving]
  - Eye pruritus [Recovering/Resolving]
  - Chills [Recovering/Resolving]
  - Secretion discharge [Recovering/Resolving]
  - Muscle spasms [Recovering/Resolving]
  - Illness [Recovering/Resolving]
  - Cardiac disorder [Recovering/Resolving]
  - Depressed mood [Recovering/Resolving]
  - Alopecia [Recovering/Resolving]
  - Dyspnoea [Recovering/Resolving]
  - Bone density decreased [Recovering/Resolving]
  - Productive cough [Recovering/Resolving]
  - Hypersensitivity [Recovering/Resolving]
  - Pulmonary pain [Recovering/Resolving]
  - Rhinorrhoea [Recovering/Resolving]
  - Tremor [Recovering/Resolving]
  - Influenza [Recovering/Resolving]
  - Lung disorder [Recovering/Resolving]
  - Decreased appetite [Recovering/Resolving]
  - Incorrect dose administered [Recovering/Resolving]
  - Forced expiratory volume decreased [Recovering/Resolving]
  - Dizziness [Recovering/Resolving]
  - Heart rate increased [Recovering/Resolving]
  - Pneumonia [Recovering/Resolving]
  - Headache [Recovering/Resolving]
  - Nausea [Recovering/Resolving]
  - Pyrexia [Recovering/Resolving]
  - Cataract [Recovering/Resolving]
  - Seasonal allergy [Recovering/Resolving]
  - Middle insomnia [Recovering/Resolving]
